FAERS Safety Report 7821318-6 (Version None)
Quarter: 2011Q4

REPORT INFORMATION
  Report Type: 
  Country: None (occurrence: None)
  Receive Date: 20111018
  Receipt Date: 20101123
  Transmission Date: 20120403
  Serious: No
  Sender: FDA-Public Use
  Company Number: US-ASTRAZENECA-2010SE55741

PATIENT
  Age: 46 Year
  Sex: Female

DRUGS (5)
  1. ALBUTEROL [Concomitant]
  2. PREDNISONE [Concomitant]
  3. VITAMIN A [Concomitant]
     Indication: ALOPECIA
  4. SYMBICORT [Suspect]
     Indication: ASTHMA
     Dosage: 2 PUFFS BID
     Route: 055
     Dates: start: 20100501
  5. BIOTIN [Concomitant]
     Indication: ALOPECIA

REACTIONS (2)
  - INCORRECT DOSE ADMINISTERED [None]
  - ALOPECIA [None]
